FAERS Safety Report 14780954 (Version 1)
Quarter: 2018Q2

REPORT INFORMATION
  Report Type: Spontaneous
  Country: US (occurrence: US)
  Receive Date: 20180419
  Receipt Date: 20180419
  Transmission Date: 20180711
  Serious: No
  Sender: FDA-Public Use
  Company Number: US-GLAXOSMITHKLINE-US2018GSK067395

PATIENT
  Sex: Female

DRUGS (1)
  1. BENLYSTA [Suspect]
     Active Substance: BELIMUMAB
     Indication: SYSTEMIC LUPUS ERYTHEMATOSUS
     Dosage: UNK
     Route: 042

REACTIONS (6)
  - Pain [Not Recovered/Not Resolved]
  - Foot operation [Unknown]
  - Surgery [Unknown]
  - Ligament sprain [Unknown]
  - Dyspnoea exertional [Not Recovered/Not Resolved]
  - Ankle operation [Unknown]
